FAERS Safety Report 6771766-0 (Version None)
Quarter: 2010Q2

REPORT INFORMATION
  Report Type: 
  Country: None (occurrence: None)
  Receive Date: 20100616
  Receipt Date: 20100222
  Transmission Date: 20101027
  Serious: No
  Sender: FDA-Public Use
  Company Number: US-ASTRAZENECA-2009UW18729

PATIENT
  Age: 70 Year
  Sex: Male
  Weight: 104.3 kg

DRUGS (5)
  1. ATACAND [Suspect]
     Indication: CEREBROVASCULAR ACCIDENT
     Route: 048
  2. ATACAND [Suspect]
     Indication: CARDIAC OPERATION
     Route: 048
  3. HCTZ [Concomitant]
  4. ASPIRIN [Concomitant]
  5. VITAMINS [Concomitant]

REACTIONS (11)
  - ABNORMAL DREAMS [None]
  - DECREASED APPETITE [None]
  - DEPRESSION [None]
  - DRY MOUTH [None]
  - DYSPEPSIA [None]
  - FATIGUE [None]
  - FEELING ABNORMAL [None]
  - MEMORY IMPAIRMENT [None]
  - PANIC ATTACK [None]
  - POLLAKIURIA [None]
  - WEIGHT INCREASED [None]
